FAERS Safety Report 5755032-8 (Version None)
Quarter: 2008Q2

REPORT INFORMATION
  Report Type: 
  Country: None (occurrence: None)
  Receive Date: 20080528
  Receipt Date: 20080528
  Transmission Date: 20081010
  Serious: No
  Sender: FDA-Public Use
  Company Number: None

PATIENT

DRUGS (1)
  1. SINGULAIR [Suspect]

REACTIONS (7)
  - ANGER [None]
  - FEELING JITTERY [None]
  - NIGHTMARE [None]
  - PARANOIA [None]
  - SLEEP DISORDER [None]
  - SUICIDE ATTEMPT [None]
  - TIC [None]
